FAERS Safety Report 12830122 (Version 3)
Quarter: 2020Q2

REPORT INFORMATION
  Report Type: Spontaneous
  Country: US (occurrence: US)
  Receive Date: 20161007
  Receipt Date: 20200612
  Transmission Date: 20200713
  Serious: No
  Sender: FDA-Public Use
  Company Number: US-SA-2016SA099207

PATIENT

DRUGS (2)
  1. TRICOR [Concomitant]
     Active Substance: FENOFIBRATE
     Dosage: UNK
  2. AUBAGIO [Suspect]
     Active Substance: TERIFLUNOMIDE
     Indication: MULTIPLE SCLEROSIS
     Dosage: 14 MG,QD
     Route: 048
     Dates: start: 20160426

REACTIONS (7)
  - Decreased appetite [Not Recovered/Not Resolved]
  - Herpes zoster [Unknown]
  - Dizziness [Unknown]
  - Alopecia [Recovered/Resolved]
  - Weight decreased [Not Recovered/Not Resolved]
  - Cognitive disorder [Unknown]
  - Headache [Unknown]

NARRATIVE: CASE EVENT DATE: 2016
